FAERS Safety Report 10077636 (Version 1)
Quarter: 2014Q2

REPORT INFORMATION
  Report Type: Spontaneous
  Country: US (occurrence: US)
  Receive Date: 20140414
  Receipt Date: 20140414
  Transmission Date: 20141212
  Serious: No
  Sender: FDA-Public Use
  Company Number: US-BANPHARM-20142090

PATIENT
  Age: 82 Year
  Sex: Female
  Weight: 70.76 kg

DRUGS (17)
  1. ALEVE LIQUID GELS 220 MG [Suspect]
     Indication: ARTHRITIS
     Dosage: 2 DF, ONCE DAILY,
     Route: 048
     Dates: start: 2013, end: 20140127
  2. BAYER ASPIRIN 81 MG ENTERIC [Suspect]
     Dosage: 1 DF, QD,
     Dates: start: 2013
  3. NORVASC (AMLODIPINE BESILATE) [Concomitant]
  4. PROTONIX (PANTOPRAZOLE) [Concomitant]
  5. UNSPECIFIED VITAMINS [Concomitant]
  6. ATENOLOL [Concomitant]
  7. KLOR-CON [Concomitant]
  8. CENTRUM SILVER [Concomitant]
  9. IMODIUM [Concomitant]
  10. PRESERVISION SOFTGELS [Concomitant]
  11. MAGNESIUM [Concomitant]
  12. MECLIZINE [Concomitant]
  13. COQ-10 [Concomitant]
  14. CITRACAL + D3 [Concomitant]
  15. VITAMIN B-12 [Concomitant]
  16. OMEGA-3 KRILL OIL [Concomitant]
  17. GABAPENTIN [Concomitant]

REACTIONS (2)
  - Muscle spasms [Not Recovered/Not Resolved]
  - Dyspepsia [Unknown]
